FAERS Safety Report 9996847 (Version 3)
Quarter: 2014Q2

REPORT INFORMATION
  Report Type: Spontaneous
  Country: US (occurrence: US)
  Receive Date: 20140311
  Receipt Date: 20140521
  Transmission Date: 20141212
  Serious: Yes (Hospitalization)
  Sender: FDA-Public Use
  Company Number: US-BAXTER-2014BAX011639

PATIENT
  Sex: Male

DRUGS (3)
  1. DIANEAL LOW CALCIUM [Suspect]
     Indication: RENAL FAILURE CHRONIC
     Route: 033
  2. DIANEAL LOW CALCIUM [Suspect]
     Indication: RENAL FAILURE CHRONIC
     Route: 033
  3. DIANEAL LOW CALCIUM [Suspect]
     Indication: PERITONEAL DIALYSIS
     Route: 033

REACTIONS (6)
  - Fall [Recovering/Resolving]
  - Chest pain [Recovering/Resolving]
  - Asthenia [Not Recovered/Not Resolved]
  - Diarrhoea [Recovering/Resolving]
  - Dehydration [Recovering/Resolving]
  - Influenza [Unknown]
